FAERS Safety Report 4899822-2 (Version None)
Quarter: 2006Q1

REPORT INFORMATION
  Report Type: 
  Country: None (occurrence: None)
  Receive Date: 20060118
  Receipt Date: 20051020
  Transmission Date: 20060701
  Serious: No
  Sender: FDA-Public Use
  Company Number: 2005002066

PATIENT
  Age: 79 Year
  Sex: Female

DRUGS (5)
  1. TARCEVA [Suspect]
     Indication: NON-SMALL CELL LUNG CANCER
     Dosage: 150 MG (QD 1-21, 7 DAYS OFF), ORAL
     Route: 048
     Dates: start: 20050601
  2. LISINOPRIL [Concomitant]
  3. LIPITOR [Concomitant]
  4. MULTIVITAMIN [Concomitant]
  5. LAXATIVE [Concomitant]

REACTIONS (1)
  - HEPATOTOXICITY [None]
